FAERS Safety Report 18424870 (Version 2)
Quarter: 2020Q4

REPORT INFORMATION
  Report Type: Spontaneous
  Country: US (occurrence: US)
  Receive Date: 20201026
  Receipt Date: 20201103
  Transmission Date: 20210114
  Serious: Yes (Other)
  Sender: FDA-Public Use
  Company Number: US-BEH-2020123730

PATIENT
  Age: 63 Year
  Sex: Male

DRUGS (2)
  1. IDELVION [Suspect]
     Active Substance: COAGULATION FACTOR IX RECOMBINANT HUMAN
     Indication: FACTOR IX DEFICIENCY
     Dosage: 10700 INTERNATIONAL UNIT, EVERY 10 DAYS, PRN
     Route: 042
     Dates: start: 20200701
  2. IDELVION [Suspect]
     Active Substance: COAGULATION FACTOR IX RECOMBINANT HUMAN
     Indication: FACTOR IX DEFICIENCY
     Dosage: 10700 INTERNATIONAL UNIT, EVERY 10 DAYS, PRN
     Route: 042
     Dates: start: 20200701

REACTIONS (4)
  - Haemorrhage [Recovered/Resolved]
  - Intentional dose omission [Unknown]
  - No adverse event [Unknown]
  - Haemarthrosis [Unknown]

NARRATIVE: CASE EVENT DATE: 20200923
